FAERS Safety Report 15760227 (Version 1)
Quarter: 2018Q4

REPORT INFORMATION
  Report Type: Spontaneous
  Country: US (occurrence: US)
  Receive Date: 20181226
  Receipt Date: 20181226
  Transmission Date: 20190205
  Serious: Yes (Death)
  Sender: FDA-Public Use
  Company Number: US-PFIZER INC-2018526772

PATIENT
  Age: 54 Year
  Sex: Male

DRUGS (1)
  1. XALKORI [Suspect]
     Active Substance: CRIZOTINIB
     Indication: CHOLANGIOCARCINOMA
     Dosage: 250 MG, UNK

REACTIONS (2)
  - Death [Fatal]
  - Product use in unapproved indication [Unknown]
